FAERS Safety Report 25862678 (Version 1)
Quarter: 2025Q3

REPORT INFORMATION
  Report Type: Report from Study
  Country: US (occurrence: US)
  Receive Date: 20250930
  Receipt Date: 20250930
  Transmission Date: 20251021
  Serious: Yes (Hospitalization)
  Sender: TAKEDA
  Company Number: US-TAKEDA-2025TUS083387

PATIENT
  Age: 58 Year
  Sex: Male

DRUGS (2)
  1. MARIBAVIR [Suspect]
     Active Substance: MARIBAVIR
     Indication: Cytomegalovirus infection
     Dosage: UNK UNK, BID
     Dates: start: 20250801
  2. MARIBAVIR [Suspect]
     Active Substance: MARIBAVIR
     Indication: Pathogen resistance

REACTIONS (1)
  - Dyspnoea [Unknown]
